FAERS Safety Report 5630917-1 (Version None)
Quarter: 2008Q1

REPORT INFORMATION
  Report Type: 
  Country: None (occurrence: None)
  Receive Date: 20080219
  Receipt Date: 20080208
  Transmission Date: 20080703
  Serious: Yes (Other)
  Sender: FDA-Public Use
  Company Number: US-PFIZER INC-2007040020

PATIENT
  Sex: Female
  Weight: 78 kg

DRUGS (9)
  1. CHANTIX [Suspect]
     Indication: TOBACCO ABUSE
  2. LIPITOR [Suspect]
     Dates: start: 20050324, end: 20050101
  3. CAFFEINE CITRATE [Suspect]
  4. GLUCOTROL XL [Concomitant]
  5. GLUCOPHAGE [Concomitant]
  6. VITAMIN E [Concomitant]
  7. ASPIRIN [Concomitant]
  8. VACCINIUM MACROCARPON [Concomitant]
  9. NIACIN [Concomitant]

REACTIONS (27)
  - ANAEMIA [None]
  - ANXIETY [None]
  - ASTHENOPIA [None]
  - BACK PAIN [None]
  - BREATHING-RELATED SLEEP DISORDER [None]
  - BURSITIS [None]
  - CEREBROVASCULAR DISORDER [None]
  - COLD SWEAT [None]
  - CONSTIPATION [None]
  - DECREASED APPETITE [None]
  - DEPRESSION [None]
  - DISTURBANCE IN ATTENTION [None]
  - DRY EYE [None]
  - FLATULENCE [None]
  - GASTROINTESTINAL MOTILITY DISORDER [None]
  - INTERVERTEBRAL DISC DEGENERATION [None]
  - LIPIDS INCREASED [None]
  - MEMORY IMPAIRMENT [None]
  - MUSCLE TWITCHING [None]
  - NERVOUS SYSTEM DISORDER [None]
  - NUCLEAR MAGNETIC RESONANCE IMAGING BRAIN ABNORMAL [None]
  - PAIN [None]
  - PEDAL PULSE ABNORMAL [None]
  - PSYCHOTIC DISORDER [None]
  - SOMNOLENCE [None]
  - SUICIDAL IDEATION [None]
  - TENDON DISORDER [None]
